FAERS Safety Report 24090752 (Version 1)
Quarter: 2024Q3

REPORT INFORMATION
  Report Type: Spontaneous
  Country: AU (occurrence: AU)
  Receive Date: 20240715
  Receipt Date: 20240715
  Transmission Date: 20241016
  Serious: Yes (Hospitalization)
  Sender: ROCHE
  Company Number: AU-ROCHE-10000023137

PATIENT
  Sex: Female

DRUGS (1)
  1. ACTEMRA [Suspect]
     Active Substance: TOCILIZUMAB
     Indication: Product used for unknown indication
     Dosage: 162 MG/0.9 ML PRE-FILLED PEN 4
     Route: 058

REACTIONS (3)
  - C-reactive protein increased [Unknown]
  - Myelodysplastic syndrome [Unknown]
  - Malaise [Unknown]
